FAERS Safety Report 15262427 (Version 1)
Quarter: 2018Q4

REPORT INFORMATION
  Report Type: Other
  Country: US (occurrence: US)
  Receive Date: 20180809
  Receipt Date: 20180809
  Transmission Date: 20190204
  Serious: Yes (Other)
  Sender: FDA-Public Use
  Company Number: US-ORIT LABORATORIES LLC-2053518

PATIENT
  Age: 46 Year
  Sex: Female
  Weight: 74.84 kg

DRUGS (5)
  1. XELJANZ [Suspect]
     Active Substance: TOFACITINIB CITRATE
     Route: 048
     Dates: start: 20180201
  2. NORGESTREL/ETHINYL ESTRADIOL [Concomitant]
     Active Substance: ETHINYL ESTRADIOL\NORGESTREL
     Route: 048
     Dates: start: 20180701
  3. ERGOCALCIFEROL. [Concomitant]
     Active Substance: ERGOCALCIFEROL
     Route: 048
  4. MONTELUKAST [Concomitant]
     Active Substance: MONTELUKAST SODIUM
     Route: 048
     Dates: start: 20180401
  5. METFORMIN HYDROCHLORIDE. [Concomitant]
     Active Substance: METFORMIN HYDROCHLORIDE
     Route: 048

REACTIONS (6)
  - Nervous system disorder [Unknown]
  - Cold sweat [Unknown]
  - Uterine leiomyoma [Unknown]
  - Gastrointestinal disorder [Unknown]
  - Ovarian enlargement [Unknown]
  - Hepatic enzyme increased [Unknown]
